FAERS Safety Report 22227327 (Version 7)
Quarter: 2023Q2

REPORT INFORMATION
  Report Type: Spontaneous
  Country: CA (occurrence: CA)
  Receive Date: 20230419
  Receipt Date: 20230629
  Transmission Date: 20230722
  Serious: Yes (Hospitalization, Other)
  Sender: FDA-Public Use
  Company Number: CA-CELLTRION INC.-2023CA007471

PATIENT

DRUGS (10)
  1. INFLECTRA [Suspect]
     Active Substance: INFLIXIMAB-DYYB
     Indication: Crohn^s disease
     Dosage: 300 MG, 0, 2, 6 WEEKS, THEN EVERY 8 WEEKS, HOSPITAL START
     Route: 042
     Dates: start: 20230408, end: 20230420
  2. INFLECTRA [Suspect]
     Active Substance: INFLIXIMAB-DYYB
     Dosage: 5 MG/KG, W0, HOSPITAL START
     Route: 042
     Dates: start: 20230408
  3. INFLECTRA [Suspect]
     Active Substance: INFLIXIMAB-DYYB
     Dosage: 5 MG/KG, W 0, IN HOSPITAL
     Route: 042
     Dates: start: 20230413
  4. INFLECTRA [Suspect]
     Active Substance: INFLIXIMAB-DYYB
     Dosage: 10 MG/KG, SECOND DOSE (WEEK 2 INDUCTION DOSE)
     Route: 042
     Dates: start: 20230420
  5. INFLECTRA [Suspect]
     Active Substance: INFLIXIMAB-DYYB
     Dosage: 600 MG (10MG/KG), WEEK 6 THEN EVERY 8 WEEKS
     Route: 042
     Dates: start: 20230518
  6. BUTYLSCOPOLAMINE BROMIDE [Concomitant]
     Active Substance: BUTYLSCOPOLAMINE BROMIDE
     Dosage: UNK
  7. HYDROMORPHONE [Concomitant]
     Active Substance: HYDROMORPHONE
     Dosage: 1 DF
  8. MESALAMINE [Concomitant]
     Active Substance: MESALAMINE
     Dosage: 1 DF
  9. PREDNISONE [Concomitant]
     Active Substance: PREDNISONE
     Dosage: UNK
     Route: 042
  10. PREDNISONE [Concomitant]
     Active Substance: PREDNISONE
     Dosage: SWITCHED TO PO (ORAL) FROM IV (INTRAVENOUS)
     Route: 048

REACTIONS (8)
  - Haematochezia [Not Recovered/Not Resolved]
  - Therapeutic product effect incomplete [Unknown]
  - Weight increased [Not Recovered/Not Resolved]
  - Arthralgia [Not Recovered/Not Resolved]
  - Condition aggravated [Not Recovered/Not Resolved]
  - Off label use [Unknown]
  - Off label use [Unknown]
  - Intentional product use issue [Unknown]

NARRATIVE: CASE EVENT DATE: 20230101
